FAERS Safety Report 12207421 (Version 3)
Quarter: 2016Q2

REPORT INFORMATION
  Report Type: Spontaneous
  Country: AT (occurrence: AT)
  Receive Date: 20160324
  Receipt Date: 20160517
  Transmission Date: 20160815
  Serious: Yes (Life-Threatening, Hospitalization, Other)
  Sender: FDA-Public Use
  Company Number: PHHY2016AT033873

PATIENT
  Age: 13 Year
  Sex: Female

DRUGS (5)
  1. ONDANSETRON [Concomitant]
     Active Substance: ONDANSETRON
     Indication: PROPHYLAXIS
     Route: 065
  2. CALCIUM FOLINATE [Concomitant]
     Active Substance: LEUCOVORIN CALCIUM
     Indication: PRODUCT USED FOR UNKNOWN INDICATION
     Route: 065
  3. EBETREXAT [Suspect]
     Active Substance: METHOTREXATE SODIUM
     Indication: OSTEOSARCOMA
     Dosage: 5000 MG, ONCE/SINGLE
     Route: 041
     Dates: start: 20160307, end: 20160307
  4. EBETREXAT [Suspect]
     Active Substance: METHOTREXATE SODIUM
     Dosage: 1000 MG, ONCE/SINGLE
     Route: 041
     Dates: start: 20160307, end: 20160307
  5. LIDAPRIM [Concomitant]
     Indication: PRODUCT USED FOR UNKNOWN INDICATION
     Route: 065

REACTIONS (8)
  - Renal failure [Recovered/Resolved]
  - Fatigue [Recovered/Resolved]
  - Liver disorder [Recovered/Resolved]
  - Nausea [Recovered/Resolved]
  - Mucosal inflammation [Recovered/Resolved]
  - Oedema [Recovered/Resolved]
  - Ascites [Recovered/Resolved]
  - Bone marrow myelogram abnormal [Recovered/Resolved]

NARRATIVE: CASE EVENT DATE: 201603
